FAERS Safety Report 6396665-8 (Version None)
Quarter: 2009Q4

REPORT INFORMATION
  Report Type: 
  Country: None (occurrence: None)
  Receive Date: 20091012
  Receipt Date: 20090928
  Transmission Date: 20100525
  Serious: Yes (Other)
  Sender: FDA-Public Use
  Company Number: US-ELI_LILLY_AND_COMPANY-US200909007054

PATIENT
  Age: 57 Year
  Sex: Female
  Weight: 56.689 kg

DRUGS (1)
  1. CYMBALTA [Suspect]
     Dates: start: 20060101

REACTIONS (2)
  - ADENOCARCINOMA [None]
  - WHITE BLOOD CELL COUNT DECREASED [None]
